FAERS Safety Report 7119775-6 (Version None)
Quarter: 2010Q4

REPORT INFORMATION
  Report Type: 
  Country: None (occurrence: None)
  Receive Date: 20101123
  Receipt Date: 20100817
  Transmission Date: 20110411
  Serious: No
  Sender: FDA-Public Use
  Company Number: US-BRISTOL-MYERS SQUIBB COMPANY-15244098

PATIENT
  Age: 65 Year
  Sex: Male

DRUGS (8)
  1. ONGLYZA [Suspect]
     Dates: start: 20100101, end: 20100816
  2. METFORMIN HCL [Concomitant]
  3. LIPITOR [Concomitant]
  4. LEVOXYL [Concomitant]
  5. LEXAPRO [Concomitant]
  6. LAMOTRIGINE [Concomitant]
  7. LITHIUM [Concomitant]
  8. SEROQUEL [Concomitant]

REACTIONS (2)
  - DIZZINESS [None]
  - RASH [None]
